FAERS Safety Report 6530807-6 (Version None)
Quarter: 2010Q1

REPORT INFORMATION
  Report Type: 
  Country: None (occurrence: None)
  Receive Date: 20100108
  Receipt Date: 20090305
  Transmission Date: 20100710
  Serious: No
  Sender: FDA-Public Use
  Company Number: A0771863A

PATIENT
  Age: 77 Year
  Sex: Female

DRUGS (4)
  1. LOVAZA [Suspect]
     Dosage: 2MG TWICE PER DAY
     Route: 048
     Dates: start: 20060101
  2. CRESTOR [Concomitant]
  3. SYNTHROID [Concomitant]
  4. VERAPAMIL [Concomitant]

REACTIONS (2)
  - SPUTUM ABNORMAL [None]
  - SPUTUM DISCOLOURED [None]
